FAERS Safety Report 6829814-5 (Version None)
Quarter: 2010Q3

REPORT INFORMATION
  Report Type: 
  Country: None (occurrence: None)
  Receive Date: 20100706
  Receipt Date: 20100615
  Transmission Date: 20110219
  Serious: Yes (Other)
  Sender: FDA-Public Use
  Company Number: 2280705-2010-00008

PATIENT
  Sex: Male

DRUGS (2)
  1. ARM + HAMMER ADVANCE WHITE BRILLIANT SPARKLE [Suspect]
     Indication: DENTAL DISORDER PROPHYLAXIS
     Dosage: USED TO BRUSH TEETH
     Dates: start: 20100601
  2. ARM + HAMMER? ADVANCE WHITE? BRILLIANT SPARKLE GEL ANTI-CAVITY TOOTHPA [Suspect]

REACTIONS (4)
  - DIZZINESS [None]
  - DRUG HYPERSENSITIVITY [None]
  - HEADACHE [None]
  - OROPHARYNGEAL PAIN [None]
